FAERS Safety Report 9028663 (Version 2)
Quarter: 2013Q1

REPORT INFORMATION
  Report Type: Spontaneous
  Country: US (occurrence: US)
  Receive Date: 20130124
  Receipt Date: 20130204
  Transmission Date: 20140127
  Serious: Yes (Hospitalization, Other)
  Sender: FDA-Public Use
  Company Number: PHEH2013US001945

PATIENT
  Sex: Male

DRUGS (6)
  1. DIOVAN [Suspect]
     Dosage: 160 MG, QD
     Route: 048
  2. NEXIUM//ESOMEPRAZOLE MAGNESIUM [Concomitant]
     Dosage: 40 MG, UNK
  3. COUMADINE [Concomitant]
  4. METOPROLOL [Concomitant]
     Dosage: 50 MG, UNK
  5. FLECAINIDE [Concomitant]
  6. DIGOXIN [Concomitant]

REACTIONS (5)
  - Pulmonary thrombosis [Unknown]
  - Hiccups [Unknown]
  - Aneurysm [Unknown]
  - Pneumonia [Unknown]
  - Heart rate increased [Unknown]
